FAERS Safety Report 15609124 (Version 1)
Quarter: 2018Q4

REPORT INFORMATION
  Report Type: Report from Study
  Country: US (occurrence: US)
  Receive Date: 20181112
  Receipt Date: 20181112
  Transmission Date: 20190205
  Serious: Yes (Other)
  Sender: FDA-Public Use
  Company Number: US-ACTELION-A-NJ2018-177647

PATIENT
  Age: 61 Year
  Sex: Male

DRUGS (2)
  1. UPTRAVI [Suspect]
     Active Substance: SELEXIPAG
     Indication: PULMONARY ARTERIAL HYPERTENSION
     Dosage: 200 MCG, BID
     Route: 048
     Dates: start: 20180807, end: 20180814
  2. OPSUMIT [Suspect]
     Active Substance: MACITENTAN
     Indication: PULMONARY ARTERIAL HYPERTENSION
     Dosage: 10 MG, QD
     Route: 048
     Dates: start: 20180918

REACTIONS (5)
  - Decreased appetite [Not Recovered/Not Resolved]
  - Nausea [Unknown]
  - Oropharyngeal pain [Not Recovered/Not Resolved]
  - Feeding tube user [Not Recovered/Not Resolved]
  - Neoplasm malignant [Not Recovered/Not Resolved]
